FAERS Safety Report 10374196 (Version 3)
Quarter: 2015Q2

REPORT INFORMATION
  Report Type: Spontaneous
  Country: US (occurrence: US)
  Receive Date: 20140811
  Receipt Date: 20150626
  Transmission Date: 20150821
  Serious: Yes (Death, Hospitalization, Other)
  Sender: FDA-Public Use
  Company Number: US-UCBSA-2014008079

PATIENT
  Age: 73 Year
  Sex: Female
  Weight: 111.1 kg

DRUGS (8)
  1. TORSEMIDE. [Concomitant]
     Active Substance: TORSEMIDE
     Indication: CARDIAC FAILURE CONGESTIVE
     Dosage: 40 MG, 2X/DAY (BID)
     Dates: start: 2013
  2. METOLAZONE. [Suspect]
     Active Substance: METOLAZONE
     Dosage: 2.5 MG, ONCE DAILY (QD)
     Route: 048
     Dates: start: 2014, end: 201408
  3. TENORMIN [Concomitant]
     Active Substance: ATENOLOL
     Indication: PRODUCT USED FOR UNKNOWN INDICATION
  4. METOLAZONE. [Suspect]
     Active Substance: METOLAZONE
     Indication: CARDIAC FAILURE CHRONIC
     Dosage: 5 MG, EV 3 DAYS IN A WEEK
  5. ALDACTONE [Concomitant]
     Active Substance: SPIRONOLACTONE
     Indication: CARDIAC FAILURE CONGESTIVE
     Dosage: 25 MG, ONCE DAILY (QD)
     Dates: start: 2013
  6. TORSEMIDE. [Concomitant]
     Active Substance: TORSEMIDE
     Indication: PULMONARY HYPERTENSION
  7. ALDACTONE [Concomitant]
     Active Substance: SPIRONOLACTONE
     Indication: PULMONARY HYPERTENSION
  8. LASIX [Concomitant]
     Active Substance: FUROSEMIDE
     Indication: PRODUCT USED FOR UNKNOWN INDICATION

REACTIONS (3)
  - Cardiogenic shock [Fatal]
  - Renal failure [Fatal]
  - Vasculitis [Recovering/Resolving]

NARRATIVE: CASE EVENT DATE: 20140721
